FAERS Safety Report 20659348 (Version 1)
Quarter: 2022Q1

REPORT INFORMATION
  Report Type: Spontaneous
  Country: US (occurrence: US)
  Receive Date: 20220331
  Receipt Date: 20220331
  Transmission Date: 20220424
  Serious: No
  Sender: FDA-Public Use
  Company Number: US-VERTEX PHARMACEUTICALS-2022-004802

PATIENT
  Age: 10 Year
  Sex: Female

DRUGS (4)
  1. KALYDECO [Suspect]
     Active Substance: IVACAFTOR
     Indication: Cystic fibrosis
     Dosage: 150 MG
     Route: 048
     Dates: start: 2019, end: 201912
  2. KALYDECO [Suspect]
     Active Substance: IVACAFTOR
     Dosage: 150 MG
     Route: 048
     Dates: start: 2020, end: 2022
  3. CICLESONIDE [Concomitant]
     Active Substance: CICLESONIDE
     Indication: Asthma
  4. CICLESONIDE [Concomitant]
     Active Substance: CICLESONIDE
     Indication: Bronchospasm

REACTIONS (1)
  - Lenticular opacities [Unknown]

NARRATIVE: CASE EVENT DATE: 20220101
